FAERS Safety Report 15417174 (Version 1)
Quarter: 2018Q3

REPORT INFORMATION
  Report Type: Spontaneous
  Country: US (occurrence: US)
  Receive Date: 20180924
  Receipt Date: 20180924
  Transmission Date: 20181010
  Serious: No
  Sender: FDA-Public Use
  Company Number: US-BAUSCH-BL-2018-024996

PATIENT
  Age: 63 Year
  Sex: Female
  Weight: 40.86 kg

DRUGS (1)
  1. ZYLET [Suspect]
     Active Substance: LOTEPREDNOL ETABONATE\TOBRAMYCIN
     Indication: EYE IRRITATION
     Route: 065
     Dates: start: 201807

REACTIONS (6)
  - Ocular hyperaemia [Not Recovered/Not Resolved]
  - Eye swelling [Not Recovered/Not Resolved]
  - Eye pain [Not Recovered/Not Resolved]
  - Headache [Not Recovered/Not Resolved]
  - Eye disorder [Not Recovered/Not Resolved]
  - Eye pruritus [Not Recovered/Not Resolved]

NARRATIVE: CASE EVENT DATE: 2018
